FAERS Safety Report 14242016 (Version 1)
Quarter: 2017Q4

REPORT INFORMATION
  Report Type: Spontaneous
  Country: US (occurrence: US)
  Receive Date: 20171130
  Receipt Date: 20171130
  Transmission Date: 20180321
  Serious: Yes (Disabling, Other)
  Sender: FDA-Public Use
  Company Number: None

PATIENT
  Age: 56 Year
  Sex: Male
  Weight: 78.75 kg

DRUGS (6)
  1. QUERCETIN WITH BROMELINE [Concomitant]
  2. CRANBERRY PILLS [Concomitant]
  3. UROXITROL [Concomitant]
  4. GARLIC PILLS [Concomitant]
  5. CIPROFLAXIN HCL [Suspect]
     Active Substance: CIPROFLOXACIN
     Indication: PROSTATITIS
     Dosage: ?          QUANTITY:30 TABLET(S);?
     Route: 048
     Dates: start: 20171109, end: 20171128
  6. PROSTATE FORMULA [Concomitant]

REACTIONS (1)
  - Hypoaesthesia [None]

NARRATIVE: CASE EVENT DATE: 20171121
